FAERS Safety Report 10456991 (Version 1)
Quarter: 2014Q3

REPORT INFORMATION
  Report Type: Report from Study
  Country: NL (occurrence: NL)
  Receive Date: 20140916
  Receipt Date: 20140916
  Transmission Date: 20150326
  Serious: Yes (Death)
  Sender: FDA-Public Use
  Company Number: PHHY2014NL118585

PATIENT
  Age: 60 Year
  Sex: Male

DRUGS (1)
  1. SANDOSTATIN LAR DEPOT [Suspect]
     Active Substance: OCTREOTIDE ACETATE
     Indication: NEUROENDOCRINE TUMOUR
     Dosage: 30 MG, PER 2 ML, ONCE EVERY 2 WEEKS
     Route: 030
     Dates: end: 20140903

REACTIONS (1)
  - Death [Fatal]

NARRATIVE: CASE EVENT DATE: 20140911
